FAERS Safety Report 6160888-3 (Version None)
Quarter: 2009Q2

REPORT INFORMATION
  Report Type: 
  Country: None (occurrence: None)
  Receive Date: 20090417
  Receipt Date: 20090417
  Transmission Date: 20091009
  Serious: Yes (Hospitalization, Other)
  Sender: FDA-Public Use
  Company Number: None

PATIENT
  Age: 18 Year
  Sex: Male
  Weight: 68.0396 kg

DRUGS (1)
  1. RELENZA [Suspect]
     Indication: INFLUENZA
     Dosage: 2 PUFFS A DAY INHAL
     Route: 055
     Dates: start: 20090218, end: 20090222

REACTIONS (7)
  - BIPOLAR DISORDER [None]
  - INSOMNIA [None]
  - PSYCHOTIC DISORDER [None]
  - REFUSAL OF TREATMENT BY PATIENT [None]
  - RESTLESSNESS [None]
  - THINKING ABNORMAL [None]
  - UNEVALUABLE EVENT [None]
